FAERS Safety Report 5270736-1 (Version None)
Quarter: 2007Q1

REPORT INFORMATION
  Report Type: 
  Country: None (occurrence: None)
  Receive Date: 20061213
  Receipt Date: 20030911
  Transmission Date: 20070707
  Serious: Yes (Other)
  Sender: FDA-Public Use
  Company Number: 2003UW11562

PATIENT
  Age: 88 Year
  Sex: Male
  Weight: 63.9572 kg

DRUGS (2)
  1. IRESSA [Suspect]
     Indication: NON-SMALL CELL LUNG CANCER
     Dosage: 250 MG QD PO
     Route: 048
  2. COUMADIN [Concomitant]

REACTIONS (3)
  - COUGH [None]
  - RASH [None]
  - THROMBOPHLEBITIS [None]
